FAERS Safety Report 9767399 (Version 1)
Quarter: 2013Q4

REPORT INFORMATION
  Report Type: Spontaneous
  Country: US (occurrence: None)
  Receive Date: 20131003
  Receipt Date: 20131003
  Transmission Date: 20140711
  Serious: Yes (Death, Hospitalization)
  Sender: FDA-Public Use
  Company Number: 2013AP008480

PATIENT
  Age: 49 Year
  Sex: Female

DRUGS (2)
  1. BUPROPION HYDROCHLORIDE TABLETS [Suspect]
     Route: 048
  2. ETHANOL [Suspect]

REACTIONS (2)
  - Completed suicide [None]
  - Cardio-respiratory arrest [None]
